FAERS Safety Report 8013174-0 (Version None)
Quarter: 2011Q4

REPORT INFORMATION
  Report Type: 
  Country: None (occurrence: None)
  Receive Date: 20111229
  Receipt Date: 20111222
  Transmission Date: 20120403
  Serious: Yes (Hospitalization, Other)
  Sender: FDA-Public Use
  Company Number: US-AMGEN-USASP2011061392

PATIENT
  Sex: Male
  Weight: 3.229 kg

DRUGS (2)
  1. PRENATAL                           /00231801/ [Concomitant]
     Route: 064
  2. ENBREL [Suspect]
     Dosage: 50 MG, QWK
     Route: 064
     Dates: start: 20031101

REACTIONS (2)
  - COOMBS TEST POSITIVE [None]
  - HYPERBILIRUBINAEMIA NEONATAL [None]
